FAERS Safety Report 18315806 (Version 1)
Quarter: 2020Q3

REPORT INFORMATION
  Report Type: Spontaneous
  Country: NL (occurrence: NL)
  Receive Date: 20200926
  Receipt Date: 20200926
  Transmission Date: 20201103
  Serious: Yes (Other)
  Sender: FDA-Public Use
  Company Number: NL-CELLTRION INC.-2020NL027087

PATIENT

DRUGS (1)
  1. REMSIMA [Suspect]
     Active Substance: INFLIXIMAB
     Indication: NEUROSARCOIDOSIS

REACTIONS (3)
  - Neurosarcoidosis [Unknown]
  - Condition aggravated [Unknown]
  - Off label use [Unknown]
